FAERS Safety Report 4606779-8 (Version None)
Quarter: 2005Q1

REPORT INFORMATION
  Report Type: 
  Country: None (occurrence: None)
  Receive Date: 20050309
  Receipt Date: 20050222
  Transmission Date: 20050727
  Serious: No
  Sender: FDA-Public Use
  Company Number: USA050188935

PATIENT
  Age: 16 Year
  Sex: Female
  Weight: 50 kg

DRUGS (1)
  1. STRATTERA [Suspect]
     Dates: start: 20040301, end: 20041201

REACTIONS (3)
  - DYSPNOEA [None]
  - PALPITATIONS [None]
  - TACHYCARDIA [None]
